FAERS Safety Report 13739469 (Version 7)
Quarter: 2017Q3

REPORT INFORMATION
  Report Type: Report from Study
  Country: IT (occurrence: IT)
  Receive Date: 20170711
  Receipt Date: 20170928
  Transmission Date: 20171127
  Serious: Yes (Hospitalization, Other)
  Sender: FDA-Public Use
  Company Number: IT-EISAI MEDICAL RESEARCH-EC-2017-029214

PATIENT
  Age: 20 Year
  Sex: Female
  Weight: 99.1 kg

DRUGS (11)
  1. LENVATINIB [Suspect]
     Active Substance: LENVATINIB
     Route: 048
     Dates: start: 20170816
  2. LENVATINIB [Suspect]
     Active Substance: LENVATINIB
     Indication: OSTEOSARCOMA
     Route: 048
     Dates: start: 20170619, end: 20170705
  3. CLEXANE [Concomitant]
     Active Substance: ENOXAPARIN SODIUM
  4. SOLDESAM [Concomitant]
     Active Substance: DEXAMETHASONE
  5. RANITIDINE. [Concomitant]
     Active Substance: RANITIDINE
  6. LENVATINIB [Suspect]
     Active Substance: LENVATINIB
     Route: 048
     Dates: start: 20170717, end: 20170813
  7. LENVATINIB [Suspect]
     Active Substance: LENVATINIB
     Route: 048
     Dates: start: 201707, end: 20170712
  8. PANTORC [Concomitant]
     Active Substance: PANTOPRAZOLE SODIUM
  9. RAMIPRIL. [Concomitant]
     Active Substance: RAMIPRIL
  10. EUTIROX [Concomitant]
     Active Substance: LEVOTHYROXINE SODIUM
  11. AMLODIPINA [Concomitant]
     Active Substance: AMLODIPINE BESYLATE

REACTIONS (2)
  - Diarrhoea [Recovered/Resolved]
  - Dyspnoea [Recovered/Resolved]

NARRATIVE: CASE EVENT DATE: 20170706
